FAERS Safety Report 9762800 (Version 2)
Quarter: 2014Q1

REPORT INFORMATION
  Report Type: Spontaneous
  Country: GB (occurrence: GB)
  Receive Date: 20131216
  Receipt Date: 20140331
  Transmission Date: 20141002
  Serious: Yes (Hospitalization)
  Sender: FDA-Public Use
  Company Number: GB-VERTEX PHARMACEUTICALS INC-2013-011786

PATIENT
  Sex: Female

DRUGS (1)
  1. KALYDECO [Suspect]
     Indication: CYSTIC FIBROSIS
     Dosage: 150 MG, BID
     Dates: start: 20130220

REACTIONS (3)
  - Device related infection [Unknown]
  - Investigation [Unknown]
  - Treatment noncompliance [Unknown]
